FAERS Safety Report 24008369 (Version 1)
Quarter: 2024Q2

REPORT INFORMATION
  Report Type: Spontaneous
  Country: GB (occurrence: None)
  Receive Date: 20240625
  Receipt Date: 20240625
  Transmission Date: 20240716
  Serious: Yes (Hospitalization, Other)
  Sender: FDA-Public Use
  Company Number: 2024A140026

PATIENT
  Age: 56 Year
  Sex: Male

DRUGS (6)
  1. DAPAGLIFLOZIN [Suspect]
     Active Substance: DAPAGLIFLOZIN
     Indication: Type 2 diabetes mellitus
     Dosage: 10MG ONCE A DAY
     Route: 048
     Dates: start: 20221212, end: 20240613
  2. EZETIMIBE [Concomitant]
     Active Substance: EZETIMIBE
  3. AMLODIPINE [Concomitant]
     Active Substance: AMLODIPINE BESYLATE
  4. ATORVASTATIN [Concomitant]
     Active Substance: ATORVASTATIN
  5. CLOPIDOGREL [Concomitant]
     Active Substance: CLOPIDOGREL BISULFATE
  6. METFORMIN [Concomitant]
     Active Substance: METFORMIN HYDROCHLORIDE

REACTIONS (2)
  - Euglycaemic diabetic ketoacidosis [Recovering/Resolving]
  - Anal fistula [Recovering/Resolving]

NARRATIVE: CASE EVENT DATE: 20240613
